FAERS Safety Report 15375497 (Version 1)
Quarter: 2018Q3

REPORT INFORMATION
  Report Type: Spontaneous
  Country: CA (occurrence: CA)
  Receive Date: 20180912
  Receipt Date: 20180912
  Transmission Date: 20181010
  Serious: Yes (Hospitalization)
  Sender: FDA-Public Use
  Company Number: CA-PFIZER INC-2018363590

PATIENT
  Age: 48 Year
  Sex: Male

DRUGS (17)
  1. CALCIUM [Concomitant]
     Active Substance: CALCIUM
     Dosage: 500 MG, 2X/DAY
  2. D?TABS [Concomitant]
     Active Substance: CHOLECALCIFEROL
     Dosage: 1000 IU, ONCE A WEEK
  3. METHOTREXATE SODIUM. [Suspect]
     Active Substance: METHOTREXATE SODIUM
     Indication: CROHN^S DISEASE
     Dosage: 25 MG, WEEKLY ON THURSDAYS
     Route: 058
     Dates: start: 201612
  4. DEXILANT [Concomitant]
     Active Substance: DEXLANSOPRAZOLE
     Dosage: 60 MG, 2X/DAY
  5. CITALOPRAM [Concomitant]
     Active Substance: CITALOPRAM HYDROBROMIDE
     Dosage: 30 MG, 1X/DAY
  6. INFLECTRA [Suspect]
     Active Substance: INFLIXIMAB-DYYB
     Indication: CROHN^S DISEASE
     Dosage: 5 MG/KG, EVERY 0,2,6 WEEKS, THEN EVERY 8 WEEKS
     Route: 042
     Dates: start: 20170922
  7. FOLIC ACID. [Concomitant]
     Active Substance: FOLIC ACID
     Dosage: 5 MG, 1XDAY 2 DAYS AFTER METHOTREXATE
  8. COVERSYL COMP [Concomitant]
     Active Substance: INDAPAMIDE\PERINDOPRIL
     Dosage: 2 MG, 1X/DAY
  9. PREGABALIN. [Suspect]
     Active Substance: PREGABALIN
     Dosage: 150 MG, 2X/DAY
  10. NOVO?GESIC [Concomitant]
     Dosage: 2 DF, AS NEEDED
     Route: 048
  11. QUETIAPINE. [Concomitant]
     Active Substance: QUETIAPINE
     Dosage: 2 DF, UNK
     Route: 048
  12. INFLECTRA [Suspect]
     Active Substance: INFLIXIMAB-DYYB
     Dosage: 5 MG/KG, EVERY 0,2,6 WEEKS, THEN EVERY 8 WEEKS
     Route: 042
     Dates: start: 20180905
  13. AMLODIPINE BESILATE [Suspect]
     Active Substance: AMLODIPINE BESYLATE
     Dosage: 5 MG, 1X/DAY
  14. ATIVAN [Suspect]
     Active Substance: LORAZEPAM
     Dosage: 1 MG, 3XDAY AS NEEDED
  15. ACEBUTOLOL [Concomitant]
     Active Substance: ACEBUTOLOL
     Dosage: 150 MG, 1X/DAY
  16. INFLECTRA [Suspect]
     Active Substance: INFLIXIMAB-DYYB
     Dosage: 5 MG/KG, EVERY 0,2,6 WEEKS, THEN EVERY 8 WEEKS
     Route: 042
     Dates: start: 20180712
  17. ROSUVASTATIN. [Concomitant]
     Active Substance: ROSUVASTATIN
     Dosage: 20 MG, BEFORE SLEEP

REACTIONS (2)
  - Fatigue [Unknown]
  - Depression [Unknown]
